FAERS Safety Report 16574636 (Version 1)
Quarter: 2019Q3

REPORT INFORMATION
  Report Type: Spontaneous
  Country: FR (occurrence: FR)
  Receive Date: 20190715
  Receipt Date: 20190715
  Transmission Date: 20191004
  Serious: Yes (Hospitalization)
  Sender: FDA-Public Use
  Company Number: FR-009507513-1907FRA004788

PATIENT
  Age: 64 Year
  Sex: Male
  Weight: 72 kg

DRUGS (8)
  1. OXALIPLATIN. [Suspect]
     Active Substance: OXALIPLATIN
     Indication: PANCREATIC CARCINOMA METASTATIC
     Dosage: 155 MILLIGRAM, CYCLICAL
     Route: 042
     Dates: start: 20190515, end: 20190515
  2. LEVOLEUCOVORIN CALCIUM. [Suspect]
     Active Substance: LEVOLEUCOVORIN CALCIUM
     Indication: PANCREATIC CARCINOMA METASTATIC
     Dosage: 360 MILLIGRAM, CYCLICAL
     Route: 042
     Dates: start: 20190515, end: 20190515
  3. SOLU-MEDROL [Suspect]
     Active Substance: METHYLPREDNISOLONE SODIUM SUCCINATE
     Indication: CHEMOTHERAPY TOXICITY ATTENUATION
     Dosage: 60 MILLIGRAM, QD
     Route: 042
     Dates: start: 20190515, end: 20190515
  4. EMEND [Suspect]
     Active Substance: APREPITANT
     Indication: CHEMOTHERAPY TOXICITY ATTENUATION
     Dosage: 125 MILLIGRAM, QD
     Route: 048
     Dates: start: 20190515, end: 20190515
  5. SETOFILM [Suspect]
     Active Substance: ONDANSETRON
     Indication: CHEMOTHERAPY TOXICITY ATTENUATION
     Dosage: 8 MILLIGRAM, QD
     Route: 048
     Dates: start: 20190515
  6. ATROPINE. [Suspect]
     Active Substance: ATROPINE
     Indication: CHEMOTHERAPY TOXICITY ATTENUATION
     Dosage: 0.25 MILLIGRAM, QD
     Route: 058
     Dates: start: 20190515
  7. PRIMPERAN [Suspect]
     Active Substance: METOCLOPRAMIDE HYDROCHLORIDE
     Indication: CHEMOTHERAPY TOXICITY ATTENUATION
     Dosage: 10 MILLIGRAM, QD
     Route: 042
     Dates: start: 20190515, end: 20190515
  8. IRINOTECAN HYDROCHLORIDE. [Suspect]
     Active Substance: IRINOTECAN HYDROCHLORIDE
     Indication: PANCREATIC CARCINOMA METASTATIC
     Dosage: 136 MILLIGRAM, CYCLICAL
     Route: 042
     Dates: start: 20190515, end: 20190515

REACTIONS (6)
  - Nausea [Recovering/Resolving]
  - Haematochezia [Recovering/Resolving]
  - Faeces soft [Recovering/Resolving]
  - Abdominal pain upper [Recovering/Resolving]
  - Pain [Recovering/Resolving]
  - Hyperhidrosis [Recovering/Resolving]

NARRATIVE: CASE EVENT DATE: 20190515
